FAERS Safety Report 12698726 (Version 2)
Quarter: 2016Q3

REPORT INFORMATION
  Report Type: Spontaneous
  Country: JP (occurrence: JP)
  Receive Date: 20160830
  Receipt Date: 20160913
  Transmission Date: 20161109
  Serious: Yes (Hospitalization, Other)
  Sender: FDA-Public Use
  Company Number: JP-GLAXOSMITHKLINE-JP2016JPN122560

PATIENT
  Age: 11 Year
  Sex: Male
  Weight: 32 kg

DRUGS (3)
  1. CARBAMAZEPINE. [Suspect]
     Active Substance: CARBAMAZEPINE
     Dosage: 800 MG, 1D
     Route: 048
     Dates: start: 20160823, end: 20160823
  2. TRYPTANOL [Suspect]
     Active Substance: AMITRIPTYLINE
     Dosage: 40 MG, 1D
     Route: 048
     Dates: start: 20160823, end: 20160823
  3. LAMICTAL [Suspect]
     Active Substance: LAMOTRIGINE
     Dosage: 100 MG, 1D
     Route: 048
     Dates: start: 20160823, end: 20160823

REACTIONS (3)
  - Accidental exposure to product [Unknown]
  - Altered state of consciousness [Recovered/Resolved]
  - Overdose [Unknown]

NARRATIVE: CASE EVENT DATE: 20160823
